FAERS Safety Report 5812378-2 (Version None)
Quarter: 2008Q3

REPORT INFORMATION
  Report Type: 
  Country: None (occurrence: None)
  Receive Date: 20080711
  Receipt Date: 20080703
  Transmission Date: 20090109
  Serious: Yes (Hospitalization)
  Sender: FDA-Public Use
  Company Number: S08-FRA-02330-01

PATIENT
  Age: 79 Year
  Sex: Male

DRUGS (5)
  1. AOTAL (ACAMPROSATE) [Suspect]
     Indication: ALCOHOL DETOXIFICATION
     Dosage: 2 TID PO
     Route: 048
     Dates: start: 20080625, end: 20080704
  2. VALIUM [Suspect]
     Dates: start: 20080625, end: 20080702
  3. BENERVA (THIAMINE HYDROCHLORIDE) [Concomitant]
  4. NICOBION (NICOTINAMIDE) [Concomitant]
  5. PAROXETINE HCL [Concomitant]

REACTIONS (2)
  - GAIT DISTURBANCE [None]
  - SALIVARY HYPERSECRETION [None]
